FAERS Safety Report 6382362-1 (Version None)
Quarter: 2009Q3

REPORT INFORMATION
  Report Type: 
  Country: None (occurrence: None)
  Receive Date: 20090928
  Receipt Date: 20090928
  Transmission Date: 20100115
  Serious: Yes (Other)
  Sender: FDA-Public Use
  Company Number: None

PATIENT
  Sex: Female
  Weight: 112.4921 kg

DRUGS (1)
  1. PRISTIQ [Suspect]
     Indication: DEPRESSION
     Dosage: 50 MG 1 MOUTH 1 TABLET
     Route: 048
     Dates: start: 20090914

REACTIONS (6)
  - ERYTHEMA [None]
  - LIP SWELLING [None]
  - PRURITUS GENERALISED [None]
  - THERAPEUTIC RESPONSE DECREASED [None]
  - THERMAL BURN [None]
  - URTICARIA [None]
